FAERS Safety Report 5728919-X (Version None)
Quarter: 2008Q2

REPORT INFORMATION
  Report Type: 
  Country: None (occurrence: None)
  Receive Date: 20080506
  Receipt Date: 20080424
  Transmission Date: 20081010
  Serious: Yes (Death, Other)
  Sender: FDA-Public Use
  Company Number: GB-BAYER-200811010BNE

PATIENT
  Sex: Male

DRUGS (1)
  1. FLUDARA [Suspect]
     Indication: CHRONIC LYMPHOCYTIC LEUKAEMIA

REACTIONS (2)
  - METASTASES TO CENTRAL NERVOUS SYSTEM [None]
  - METASTATIC MALIGNANT MELANOMA [None]
